FAERS Safety Report 15815017 (Version 2)
Quarter: 2019Q1

REPORT INFORMATION
  Report Type: Report from Study
  Country: None (occurrence: CA)
  Receive Date: 20190112
  Receipt Date: 20190206
  Transmission Date: 20190417
  Serious: Yes (Other)
  Sender: FDA-Public Use
  Company Number: CA-ABBVIE-19K-028-2620985-00

PATIENT
  Sex: Female

DRUGS (1)
  1. HUMIRA [Suspect]
     Active Substance: ADALIMUMAB
     Indication: CROHN^S DISEASE
     Route: 058
     Dates: start: 20180926

REACTIONS (4)
  - Stoma creation [Unknown]
  - Gastrointestinal anastomotic leak [Unknown]
  - Gastrointestinal stenosis [Unknown]
  - Post procedural sepsis [Unknown]
